FAERS Safety Report 7979297-7 (Version None)
Quarter: 2011Q4

REPORT INFORMATION
  Report Type: 
  Country: None (occurrence: None)
  Receive Date: 20111214
  Receipt Date: 20111202
  Transmission Date: 20120403
  Serious: Yes (Hospitalization)
  Sender: FDA-Public Use
  Company Number: US-SANOFI-AVENTIS-2011SA080288

PATIENT
  Age: 51 Year
  Sex: Female

DRUGS (6)
  1. XANAX [Concomitant]
  2. AMBIEN [Suspect]
     Route: 065
  3. OXYCODONE HCL [Concomitant]
  4. FORMOTEROL FUMARATE [Concomitant]
  5. SEROQUEL [Concomitant]
  6. PERCOCET [Concomitant]

REACTIONS (8)
  - PULMONARY EMBOLISM [None]
  - MYALGIA [None]
  - CHRONIC OBSTRUCTIVE PULMONARY DISEASE [None]
  - HYPOXIA [None]
  - CONVULSION [None]
  - SOMNOLENCE [None]
  - MENTAL DISORDER [None]
  - PNEUMONIA [None]
